FAERS Safety Report 15655934 (Version 2)
Quarter: 2019Q2

REPORT INFORMATION
  Report Type: Spontaneous
  Country: US (occurrence: US)
  Receive Date: 20181126
  Receipt Date: 20190606
  Transmission Date: 20190711
  Serious: Yes (Hospitalization, Other)
  Sender: FDA-Public Use
  Company Number: US-AMNEAL PHARMACEUTICALS-2018AMN00842

PATIENT
  Age: 7 Year
  Sex: Male
  Weight: 20.86 kg

DRUGS (1)
  1. OXCARBAZEPINE. [Suspect]
     Active Substance: OXCARBAZEPINE
     Indication: FOCAL DYSCOGNITIVE SEIZURES
     Dosage: 7 ML, 2X/DAY (EVERY MORNING AND EVERY EVENING)
     Route: 048
     Dates: start: 20181104, end: 20181107

REACTIONS (3)
  - Focal dyscognitive seizures [Unknown]
  - Dysphemia [Unknown]
  - Generalised tonic-clonic seizure [Unknown]

NARRATIVE: CASE EVENT DATE: 201811
